FAERS Safety Report 11185109 (Version 1)
Quarter: 2015Q2

REPORT INFORMATION
  Report Type: Spontaneous
  Country: CO (occurrence: CO)
  Receive Date: 20150612
  Receipt Date: 20150612
  Transmission Date: 20150821
  Serious: Yes (Other)
  Sender: FDA-Public Use
  Company Number: CO-PFIZER INC-2015196476

PATIENT
  Age: 66 Year
  Sex: Female

DRUGS (1)
  1. SOMESE [Suspect]
     Active Substance: TRIAZOLAM
     Indication: INSOMNIA

REACTIONS (4)
  - Spinal fracture [Unknown]
  - Fall [Unknown]
  - Malaise [Not Recovered/Not Resolved]
  - Incorrect drug administration duration [Unknown]
